FAERS Safety Report 17438981 (Version 1)
Quarter: 2020Q1

REPORT INFORMATION
  Report Type: Spontaneous
  Country: US (occurrence: US)
  Receive Date: 20200205
  Receipt Date: 20200205
  Transmission Date: 20200409
  Serious: Yes (Death)
  Sender: FDA-Public Use
  Company Number: None

PATIENT
  Age: 63 Year
  Sex: Female

DRUGS (34)
  1. IBUPROFEN. [Concomitant]
     Active Substance: IBUPROFEN
  2. MELOXICAM. [Concomitant]
     Active Substance: MELOXICAM
  3. CEPHALEXIN. [Concomitant]
     Active Substance: CEPHALEXIN
  4. MAGNESIUM-OX [Concomitant]
  5. BENZONATATE. [Concomitant]
     Active Substance: BENZONATATE
  6. MUPIROCIN. [Concomitant]
     Active Substance: MUPIROCIN
  7. POT CHLORIDE [Concomitant]
     Active Substance: POTASSIUM CHLORIDE
  8. RANIIDINE [Concomitant]
  9. NO DRUG NAME [Concomitant]
  10. PROCHLORPER [Concomitant]
  11. VANIQA [Concomitant]
     Active Substance: EFLORNITHINE HYDROCHLORIDE
  12. ZOLPIDEM [Concomitant]
     Active Substance: ZOLPIDEM TARTRATE
  13. HYDROCO/APAP [Concomitant]
     Active Substance: ACETAMINOPHEN\HYDROCODONE
  14. LORAZEPAM. [Concomitant]
     Active Substance: LORAZEPAM
  15. NEUPOGEN [Concomitant]
     Active Substance: FILGRASTIM
  16. CAPECITABINE 500MG [Suspect]
     Active Substance: CAPECITABINE
     Indication: BREAST CANCER FEMALE
     Route: 048
     Dates: start: 201910, end: 201911
  17. OMEPRAZOLE. [Concomitant]
     Active Substance: OMEPRAZOLE
  18. PREDNISONE. [Concomitant]
     Active Substance: PREDNISONE
  19. CAPECITABINE 150MG [Suspect]
     Active Substance: CAPECITABINE
     Indication: BREAST CANCER FEMALE
     Route: 048
     Dates: start: 201910, end: 201911
  20. DEXAMETHASON [Concomitant]
     Active Substance: DEXAMETHASONE
  21. HYDROMET [Concomitant]
     Active Substance: HOMATROPINE METHYLBROMIDE\HYDROCODONE BITARTRATE
  22. LACTULOSE. [Concomitant]
     Active Substance: LACTULOSE
  23. LIDO/PRILOCN [Concomitant]
  24. OSELTAMIVIR [Concomitant]
     Active Substance: OSELTAMIVIR
  25. ATORVASTATIN [Concomitant]
     Active Substance: ATORVASTATIN
  26. DOXEPIN HCL [Concomitant]
     Active Substance: DOXEPIN HYDROCHLORIDE
  27. IPRATROPIUM/SOL ALBUTER [Concomitant]
  28. LEVOTHYROXIN [Concomitant]
     Active Substance: LEVOTHYROXINE
  29. ONDANSETRON [Concomitant]
     Active Substance: ONDANSETRON
  30. SSD [Concomitant]
     Active Substance: SILVER SULFADIAZINE
  31. WIXELA INHUB [Concomitant]
     Active Substance: FLUTICASONE PROPIONATE\SALMETEROL XINAFOATE
  32. CANDESARTAN. [Concomitant]
     Active Substance: CANDESARTAN
  33. VENLAFAXINE [Concomitant]
     Active Substance: VENLAFAXINE HYDROCHLORIDE
  34. NO DRUG NAME [Concomitant]

REACTIONS (1)
  - Death [None]
